FAERS Safety Report 6187693-6 (Version None)
Quarter: 2009Q2

REPORT INFORMATION
  Report Type: 
  Country: None (occurrence: None)
  Receive Date: 20090511
  Receipt Date: 20080506
  Transmission Date: 20091009
  Serious: Yes (Hospitalization)
  Sender: FDA-Public Use
  Company Number: 2008PV000022

PATIENT
  Age: 15 Year
  Sex: Female

DRUGS (27)
  1. DEPOCYT [Suspect]
     Indication: MEDULLOBLASTOMA
     Dosage: 50 MG; QOW; INTH
     Route: 037
     Dates: start: 20080101, end: 20080314
  2. DEXAVEN [Concomitant]
  3. BISEPTOL [Concomitant]
  4. FLUCONAZOLE [Concomitant]
  5. TRAZOL [Concomitant]
  6. DEXAVEN [Concomitant]
  7. ZOFRAN [Concomitant]
  8. CIPROFLOXACIN [Concomitant]
  9. MORPHINE SULFATE [Concomitant]
  10. NEUPOGEN [Concomitant]
  11. MAXIPIN [Concomitant]
  12. VANCOMYCIN HCL [Concomitant]
  13. AMIKIN [Concomitant]
  14. ALUMINUM HYDROXIDE [Concomitant]
  15. LACTULOSE [Concomitant]
  16. MANNITOL [Concomitant]
  17. FUNGIZONE [Concomitant]
  18. DIMETICONE [Concomitant]
  19. ALBUMIN (HUMAN) [Concomitant]
  20. CLEMASTINE [Concomitant]
  21. METAMIZOLE [Concomitant]
  22. CEFTAZIDIME [Concomitant]
  23. KETOCONAZOLE [Concomitant]
  24. OMEPRAZOLE [Concomitant]
  25. AMINOPHYLLINE [Concomitant]
  26. ACETAMINOPHEN [Concomitant]
  27. DEXAVEN [Concomitant]

REACTIONS (11)
  - ABNORMAL BEHAVIOUR [None]
  - ALTERED STATE OF CONSCIOUSNESS [None]
  - DISEASE PROGRESSION [None]
  - DISSOCIATIVE DISORDER [None]
  - INFECTION [None]
  - MEDULLOBLASTOMA [None]
  - MEMORY IMPAIRMENT [None]
  - METASTATIC NEOPLASM [None]
  - REGRESSIVE BEHAVIOUR [None]
  - SPEECH DISORDER [None]
  - URINARY INCONTINENCE [None]
